FAERS Safety Report 14216459 (Version 3)
Quarter: 2018Q2

REPORT INFORMATION
  Report Type: Report from Study
  Country: None (occurrence: GR)
  Receive Date: 20171122
  Receipt Date: 20180615
  Transmission Date: 20180711
  Serious: Yes (Other)
  Sender: FDA-Public Use
  Company Number: GR-ABBVIE-17K-066-2170962-00

PATIENT
  Age: 76 Year
  Sex: Male
  Weight: 78 kg

DRUGS (11)
  1. DUODOPA [Suspect]
     Active Substance: CARBIDOPA\LEVODOPA
     Dosage: MORNING DOSE: 13.5 ML; CONTINUOUS RATE: 3.9 ML/H; EXTRA DOSE: 2.2 ML
     Route: 050
  2. STILNOX [Concomitant]
     Active Substance: ZOLPIDEM TARTRATE
     Indication: INSOMNIA
     Dosage: ONCE AT NIGHT
     Route: 048
  3. REQUIP [Concomitant]
     Active Substance: ROPINIROLE HYDROCHLORIDE
     Dosage: DECREASED DOSE
     Route: 048
     Dates: start: 20170901
  4. REQUIP [Concomitant]
     Active Substance: ROPINIROLE HYDROCHLORIDE
     Indication: PARKINSON^S DISEASE
     Route: 048
  5. LOSEC [Concomitant]
     Active Substance: OMEPRAZOLE
     Indication: PRODUCT USED FOR UNKNOWN INDICATION
     Route: 048
  6. DUODOPA [Suspect]
     Active Substance: CARBIDOPA\LEVODOPA
     Indication: PARKINSON^S DISEASE
     Dosage: MORNING DOSE: 13.5ML; CONTINUOUS RATE: 3.8ML/H; EXTRA DOSE: 2.2ML
     Route: 050
     Dates: start: 201111
  7. LEXOTANIL [Concomitant]
     Active Substance: BROMAZEPAM
     Indication: ANXIETY
     Dosage: ONE WHEN REQUIRED
     Route: 048
  8. DULCOSOFT [Concomitant]
     Indication: CONSTIPATION
     Route: 048
     Dates: start: 20170812
  9. DUPHALAC [Concomitant]
     Active Substance: LACTULOSE
     Indication: CONSTIPATION
     Dosage: 20 CUBIC CENTIMETER
     Route: 048
     Dates: start: 20170812
  10. STILNOX [Concomitant]
     Active Substance: ZOLPIDEM TARTRATE
     Route: 048
  11. SYMMETREL [Concomitant]
     Active Substance: AMANTADINE HYDROCHLORIDE
     Indication: PARKINSON^S DISEASE
     Route: 048

REACTIONS (5)
  - Muscular weakness [Not Recovered/Not Resolved]
  - Basal cell carcinoma [Not Recovered/Not Resolved]
  - Hypotonia [Not Recovered/Not Resolved]
  - Ear haemorrhage [Unknown]
  - Gait disturbance [Not Recovered/Not Resolved]

NARRATIVE: CASE EVENT DATE: 2015
